FAERS Safety Report 17083245 (Version 2)
Quarter: 2019Q4

REPORT INFORMATION
  Report Type: Spontaneous
  Country: US (occurrence: US)
  Receive Date: 20191127
  Receipt Date: 20191227
  Transmission Date: 20200122
  Serious: Yes (Other)
  Sender: FDA-Public Use
  Company Number: US-SA-2019SA326714

PATIENT
  Age: 50 Year
  Sex: Female
  Weight: 70.7 kg

DRUGS (2)
  1. NUCALA [Concomitant]
     Active Substance: MEPOLIZUMAB
     Dosage: UNK UNK, QM
     Dates: start: 2016
  2. DUPIXENT [Suspect]
     Active Substance: DUPILUMAB
     Indication: ASTHMA
     Dosage: .01CC IN RIGHT FOREARM INTRADERMAL, .03 CC IN LEFT DELTOID SUBCUTANEOUS; TOTAL .04CC, 1X
     Dates: start: 20191114, end: 20191114

REACTIONS (7)
  - Eye pruritus [Recovered/Resolved]
  - Throat tightness [Recovered/Resolved]
  - Condition aggravated [Recovering/Resolving]
  - Anaphylactoid reaction [Recovered/Resolved]
  - Respiratory disorder [Recovering/Resolving]
  - Skin reaction [Recovered/Resolved]
  - Chest discomfort [Recovered/Resolved]

NARRATIVE: CASE EVENT DATE: 2019
